FAERS Safety Report 9603903 (Version 1)
Quarter: 2013Q4

REPORT INFORMATION
  Report Type: Spontaneous
  Country: US (occurrence: US)
  Receive Date: 20131008
  Receipt Date: 20131008
  Transmission Date: 20140711
  Serious: No
  Sender: FDA-Public Use
  Company Number: US-BIOGENIDEC-2013BI094434

PATIENT
  Age: 47 Year
  Sex: Female

DRUGS (1)
  1. TYSABRI [Suspect]
     Indication: MULTIPLE SCLEROSIS
     Route: 042
     Dates: start: 20100512

REACTIONS (10)
  - Pleuritic pain [Not Recovered/Not Resolved]
  - Cough [Not Recovered/Not Resolved]
  - Depressed mood [Not Recovered/Not Resolved]
  - Swelling [Recovered/Resolved]
  - Throat irritation [Not Recovered/Not Resolved]
  - Ear discomfort [Not Recovered/Not Resolved]
  - Influenza [Not Recovered/Not Resolved]
  - Chills [Not Recovered/Not Resolved]
  - Chest pain [Not Recovered/Not Resolved]
  - Bronchitis [Not Recovered/Not Resolved]
